FAERS Safety Report 9978227 (Version 1)
Quarter: 2014Q1

REPORT INFORMATION
  Report Type: Other
  Country: US (occurrence: US)
  Receive Date: 20140306
  Receipt Date: 20140306
  Transmission Date: 20141002
  Serious: Yes (Death)
  Sender: FDA-Public Use
  Company Number: US-FRI-1000054893

PATIENT
  Age: 34 Year
  Sex: Male

DRUGS (14)
  1. ACETAMINOPHEN/HYDROCODONE [Suspect]
  2. SIMVASTATIN [Suspect]
  3. SALICYLATE [Suspect]
  4. ALPRAZOLAM [Suspect]
  5. HYDROXYZINE [Suspect]
  6. MILNACIPRAN [Suspect]
  7. VILAZODONE [Suspect]
  8. PROPRANOLOL [Suspect]
  9. CARVEDILOL [Suspect]
  10. LURASIDONE [Suspect]
  11. RANOLAZINE [Suspect]
  12. MIRTAZAPINE [Suspect]
  13. TOPIRAMATE [Suspect]
  14. CLOPIDOGREL [Suspect]

REACTIONS (2)
  - Completed suicide [Fatal]
  - Cardio-respiratory arrest [Fatal]
